FAERS Safety Report 12268137 (Version 1)
Quarter: 2016Q2

REPORT INFORMATION
  Report Type: Spontaneous
  Country: IT (occurrence: IT)
  Receive Date: 20160414
  Receipt Date: 20160414
  Transmission Date: 20160815
  Serious: Yes (Death, Life-Threatening)
  Sender: FDA-Public Use
  Company Number: IT-FRESENIUS KABI-FK201601904

PATIENT
  Age: 66 Year
  Sex: Female

DRUGS (2)
  1. COLISTIMETHATE (MANUFACTURER UNKNOWN) [Suspect]
     Active Substance: COLISTIMETHATE SODIUM
     Indication: ACINETOBACTER TEST POSITIVE
     Route: 050
     Dates: start: 20100609
  2. COLISTIMETHATE (MANUFACTURER UNKNOWN) [Suspect]
     Active Substance: COLISTIMETHATE SODIUM
     Route: 042

REACTIONS (3)
  - Death [Fatal]
  - Drug resistance [Unknown]
  - Multiple organ dysfunction syndrome [Unknown]
